FAERS Safety Report 6742410-3 (Version None)
Quarter: 2010Q2

REPORT INFORMATION
  Report Type: 
  Country: None (occurrence: None)
  Receive Date: 20100526
  Receipt Date: 20100514
  Transmission Date: 20101027
  Serious: Yes (Other)
  Sender: FDA-Public Use
  Company Number: PHHY2010US31664

PATIENT
  Sex: Male
  Weight: 68.04 kg

DRUGS (2)
  1. EXJADE [Suspect]
     Indication: THALASSAEMIA ALPHA
     Dosage: 2000 MG DAILY
     Route: 048
     Dates: start: 20061108
  2. EXJADE [Suspect]
     Indication: HAEMOGLOBIN E DISEASE

REACTIONS (3)
  - BLOOD CREATININE INCREASED [None]
  - HAEMATURIA [None]
  - PROTEINURIA [None]
